FAERS Safety Report 9057741 (Version 1)
Quarter: 2013Q1

REPORT INFORMATION
  Report Type: Spontaneous
  Country: DK (occurrence: None)
  Receive Date: 20130117
  Receipt Date: 20130117
  Transmission Date: 20140127
  Serious: Yes (Other)
  Sender: FDA-Public Use
  Company Number: 2013MA000463

PATIENT
  Sex: Female

DRUGS (6)
  1. SERTRALINE HYDROCHLORIDE TABLETS, 100 MG (BASE) (AELLC) (SERTRALINE) [Suspect]
     Indication: PRODUCT USED FOR UNKNOWN INDICATION
     Dates: start: 201211
  2. STESOLID [Concomitant]
  3. COZAAR [Concomitant]
  4. PROPAVAN [Concomitant]
  5. CIPRALEX [Concomitant]
  6. CORTISONE [Concomitant]

REACTIONS (5)
  - Anxiety [None]
  - Nausea [None]
  - Vision blurred [None]
  - Drug ineffective [None]
  - Influenza [None]
